FAERS Safety Report 24242978 (Version 1)
Quarter: 2024Q3

REPORT INFORMATION
  Report Type: Spontaneous
  Country: JP (occurrence: JP)
  Receive Date: 20240823
  Receipt Date: 20240823
  Transmission Date: 20241016
  Serious: Yes (Other)
  Sender: RANBAXY
  Company Number: JP-SUN PHARMACEUTICAL INDUSTRIES LTD-2024R1-464065

PATIENT
  Age: 60 Year
  Sex: Male

DRUGS (6)
  1. CISPLATIN [Suspect]
     Active Substance: CISPLATIN
     Indication: Tongue cancer recurrent
     Dosage: 75 MILLIGRAM/SQ. METER
     Route: 065
  2. CISPLATIN [Suspect]
     Active Substance: CISPLATIN
     Indication: Tongue cancer metastatic
  3. DOCETAXEL [Suspect]
     Active Substance: DOCETAXEL\DOCETAXEL ANHYDROUS
     Indication: Tongue cancer recurrent
     Dosage: 60 MILLIGRAM/SQ. METER
     Route: 065
  4. DOCETAXEL [Suspect]
     Active Substance: DOCETAXEL\DOCETAXEL ANHYDROUS
     Indication: Metastases to lung
  5. CETUXIMAB [Suspect]
     Active Substance: CETUXIMAB
     Indication: Tongue cancer recurrent
     Dosage: 400 MILLIGRAM/SQ. METER ON DAY 1
     Route: 065
  6. CETUXIMAB [Suspect]
     Active Substance: CETUXIMAB
     Indication: Metastases to lung
     Dosage: 400 MILLIGRAM/SQ. METER ON DAYS 8, 15, AND 22;
     Route: 065

REACTIONS (1)
  - Renal disorder [Unknown]
